FAERS Safety Report 7457116-5 (Version None)
Quarter: 2011Q1

REPORT INFORMATION
  Report Type: 
  Country: None (occurrence: None)
  Receive Date: 20110302
  Receipt Date: 20101214
  Transmission Date: 20110831
  Serious: No
  Sender: FDA-Public Use
  Company Number: 023767

PATIENT
  Sex: Female

DRUGS (6)
  1. CIMZIA [Suspect]
     Indication: CROHN'S DISEASE
     Dosage: (200 MG 1X/2 WEEKS SUBCUTANEOUS), (400 MG 1X/2 WEEKS SUBCUTANEOUS)
     Route: 058
     Dates: start: 20101022
  2. CIMZIA [Suspect]
     Indication: CROHN'S DISEASE
     Dosage: (200 MG 1X/2 WEEKS SUBCUTANEOUS), (400 MG 1X/2 WEEKS SUBCUTANEOUS)
     Route: 058
     Dates: start: 20080101, end: 20101012
  3. CYMBALTA [Concomitant]
  4. NEXIUM [Concomitant]
  5. VITAMIN D [Concomitant]
  6. LEVONORGESTREL [Concomitant]

REACTIONS (5)
  - OTITIS MEDIA [None]
  - GASTROENTERITIS VIRAL [None]
  - ARTHROPATHY [None]
  - NASOPHARYNGITIS [None]
  - DRUG INEFFECTIVE [None]
